FAERS Safety Report 6528341-2 (Version None)
Quarter: 2010Q1

REPORT INFORMATION
  Report Type: 
  Country: None (occurrence: None)
  Receive Date: 20100106
  Receipt Date: 20091228
  Transmission Date: 20100710
  Serious: Yes (Hospitalization, Other)
  Sender: FDA-Public Use
  Company Number: PHHY2009FR59750

PATIENT
  Sex: Male

DRUGS (11)
  1. LAMISIL [Suspect]
     Dosage: UNK
     Route: 048
     Dates: start: 20060101, end: 20090730
  2. LERCANIDIPINE [Suspect]
     Dosage: UNK
     Route: 048
     Dates: start: 20090609, end: 20090802
  3. TAHOR [Concomitant]
     Dosage: UNK
     Dates: end: 20090812
  4. GLUCOPHAGE [Concomitant]
     Dosage: UNK
     Dates: end: 20090812
  5. KALEORID [Concomitant]
     Dosage: UNK
     Dates: end: 20090812
  6. ZYLORIC [Concomitant]
     Dosage: UNK
     Dates: end: 20090812
  7. ESBERIVEN [Concomitant]
     Dosage: UNK
     Dates: end: 20090812
  8. AMAREL [Concomitant]
     Dosage: UNK
     Dates: end: 20090822
  9. APROVEL [Concomitant]
     Dosage: UNK
     Dates: end: 20090822
  10. FLUDEX [Concomitant]
     Dosage: UNK
     Dates: end: 20090822
  11. TEMERIT [Concomitant]
     Dosage: UNK
     Dates: end: 20090823

REACTIONS (18)
  - ACUTE LYMPHOCYTIC LEUKAEMIA [None]
  - BLOOD IMMUNOGLOBULIN M DECREASED [None]
  - CHOLESTASIS [None]
  - DECREASED APPETITE [None]
  - DIARRHOEA [None]
  - DUODENITIS [None]
  - GASTRITIS [None]
  - GENERAL PHYSICAL HEALTH DETERIORATION [None]
  - HEPATITIS CHOLESTATIC [None]
  - HIATUS HERNIA [None]
  - LYMPHADENOPATHY [None]
  - OESOPHAGITIS [None]
  - PANCREATIC NEOPLASM [None]
  - PANCYTOPENIA [None]
  - RENAL FAILURE ACUTE [None]
  - SPLENOMEGALY [None]
  - VOMITING [None]
  - WEIGHT DECREASED [None]
